FAERS Safety Report 14707383 (Version 1)
Quarter: 2018Q2

REPORT INFORMATION
  Report Type: Spontaneous
  Country: US (occurrence: US)
  Receive Date: 20180403
  Receipt Date: 20180403
  Transmission Date: 20180711
  Serious: Yes (Hospitalization, Other)
  Sender: FDA-Public Use
  Company Number: US-ROCHE-2095532

PATIENT
  Age: 48 Year
  Sex: Female
  Weight: 64.47 kg

DRUGS (1)
  1. RITUXAN [Suspect]
     Active Substance: RITUXIMAB
     Indication: ARTHRITIS
     Dosage: ONGOING: NO
     Route: 042
     Dates: start: 20180316

REACTIONS (14)
  - Arthralgia [Unknown]
  - Facial paralysis [Unknown]
  - Gait disturbance [Unknown]
  - Hypertension [Unknown]
  - Anaphylactic reaction [Unknown]
  - Memory impairment [Unknown]
  - Limb discomfort [Unknown]
  - Loss of consciousness [Unknown]
  - Nausea [Unknown]
  - Musculoskeletal stiffness [Unknown]
  - Myalgia [Unknown]
  - Joint swelling [Not Recovered/Not Resolved]
  - Hypersensitivity [Unknown]
  - Vasodilatation [Unknown]

NARRATIVE: CASE EVENT DATE: 20180316
